FAERS Safety Report 14692028 (Version 1)
Quarter: 2018Q1

REPORT INFORMATION
  Report Type: Spontaneous
  Country: US (occurrence: US)
  Receive Date: 20180329
  Receipt Date: 20180329
  Transmission Date: 20180509
  Serious: Yes (Other)
  Sender: FDA-Public Use
  Company Number: US-CIPLA (EU) LIMITED-2018US13620

PATIENT

DRUGS (7)
  1. LOPINAVIR/RITONAVIR [Suspect]
     Active Substance: LOPINAVIR\RITONAVIR
     Indication: HIV INFECTION
     Dosage: UNK
     Route: 065
  2. RHEUM FRANGULA [Interacting]
     Active Substance: DIETARY SUPPLEMENT\HERBALS
     Indication: LAXATIVE SUPPORTIVE CARE
     Dosage: UNK
     Route: 065
  3. EFAMOL [Interacting]
     Active Substance: EVENING PRIMROSE OIL\HERBALS
     Indication: LAXATIVE SUPPORTIVE CARE
     Dosage: UNK
     Route: 065
  4. TENOFOVIR [Concomitant]
     Active Substance: TENOFOVIR
     Indication: HIV INFECTION
     Dosage: UNK
     Route: 065
  5. LAMIVUDINE. [Concomitant]
     Active Substance: LAMIVUDINE
     Indication: HIV INFECTION
     Dosage: UNK
     Route: 065
  6. COLAYUR [Interacting]
     Active Substance: HERBALS
     Indication: LAXATIVE SUPPORTIVE CARE
     Dosage: UNK
     Route: 065
  7. STAVUDINE. [Concomitant]
     Active Substance: STAVUDINE
     Indication: HIV INFECTION
     Dosage: UNK
     Route: 065

REACTIONS (3)
  - Drug interaction [Unknown]
  - Diarrhoea [Unknown]
  - Drug level increased [Unknown]
